FAERS Safety Report 8416875-5 (Version None)
Quarter: 2012Q2

REPORT INFORMATION
  Report Type: 
  Country: None (occurrence: None)
  Receive Date: 20120606
  Receipt Date: 20120529
  Transmission Date: 20120825
  Serious: Yes (Disabling, Other)
  Sender: FDA-Public Use
  Company Number: US-BAYER-201031666NA

PATIENT
  Sex: Male
  Weight: 70 kg

DRUGS (28)
  1. CALCITRIOL [Concomitant]
  2. PLAVIX [Concomitant]
  3. FOSRENOL [Concomitant]
  4. SENSIPAR [Concomitant]
  5. CLONIDINE [Concomitant]
  6. RENVELA [Concomitant]
  7. GADOLINIUM IN UNSPECIFIED DRUG [Suspect]
     Dosage: UNK
     Dates: start: 20050414, end: 20050414
  8. RENA-VITE [Concomitant]
  9. CALCIUM CARBONATE [Concomitant]
  10. METOPROLOL TARTRATE [Concomitant]
  11. RENAGEL [Concomitant]
  12. COZAAR [Concomitant]
  13. OMNISCAN [Suspect]
     Indication: NUCLEAR MAGNETIC RESONANCE IMAGING BRAIN
     Dosage: 15 ML, UNK
     Dates: start: 20041015, end: 20041015
  14. PROHANCE [Suspect]
     Indication: NUCLEAR MAGNETIC RESONANCE IMAGING ABDOMINAL
     Dosage: 17 ML, ONCE
     Dates: start: 20030703, end: 20030703
  15. PHOSLO [Concomitant]
  16. MAGNEVIST [Suspect]
  17. EPOGEN [Concomitant]
  18. HECTOROL [Concomitant]
  19. IRON [Concomitant]
  20. AMLODIPINE [Concomitant]
  21. OMNISCAN [Suspect]
     Indication: NUCLEAR MAGNETIC RESONANCE IMAGING
     Dosage: 30 ML, ONCE
     Dates: start: 20040713, end: 20040713
  22. PROHANCE [Suspect]
     Indication: NUCLEAR MAGNETIC RESONANCE IMAGING
     Dates: start: 20050414, end: 20050414
  23. LISINOPRIL [Concomitant]
  24. OMNISCAN [Suspect]
     Indication: NUCLEAR MAGNETIC RESONANCE IMAGING ABDOMINAL
  25. OPTIMARK [Suspect]
  26. PROAMATINE [Concomitant]
  27. MULTIHANCE [Suspect]
  28. FOLTX [Concomitant]

REACTIONS (26)
  - FIBROSIS [None]
  - MUSCULAR WEAKNESS [None]
  - SKIN HYPERPIGMENTATION [None]
  - ERYTHEMA [None]
  - NEPHROGENIC SYSTEMIC FIBROSIS [None]
  - DEFORMITY [None]
  - PARAESTHESIA [None]
  - SKIN BURNING SENSATION [None]
  - HYPERKERATOSIS [None]
  - MOBILITY DECREASED [None]
  - EXTREMITY CONTRACTURE [None]
  - SCAR [None]
  - SKIN INDURATION [None]
  - JOINT STIFFNESS [None]
  - GAIT DISTURBANCE [None]
  - SKIN TIGHTNESS [None]
  - JOINT RANGE OF MOTION DECREASED [None]
  - SKIN PLAQUE [None]
  - PAIN [None]
  - HYPOAESTHESIA [None]
  - SKIN LESION [None]
  - SKIN DISCOLOURATION [None]
  - RASH MACULAR [None]
  - GENERAL PHYSICAL HEALTH DETERIORATION [None]
  - DRY SKIN [None]
  - PRURITUS [None]
